FAERS Safety Report 9119646 (Version 1)
Quarter: 2013Q1

REPORT INFORMATION
  Report Type: Spontaneous
  Country: FR (occurrence: FR)
  Receive Date: 20130226
  Receipt Date: 20130226
  Transmission Date: 20140127
  Serious: Yes (Hospitalization)
  Sender: FDA-Public Use
  Company Number: FR-PFIZER INC-2013066305

PATIENT
  Age: 75 Year
  Sex: Male
  Weight: 62 kg

DRUGS (3)
  1. TAHOR [Suspect]
     Dosage: 40 MG, ONCE DAILY
     Dates: end: 20121127
  2. TRIFLUCAN [Suspect]
     Indication: CANDIDA INFECTION
     Dosage: 400 MG, DAILY
     Route: 042
     Dates: start: 20121121, end: 20121128
  3. INEXIUM [Suspect]
     Dosage: 40 MG, ONCE DAILY
     Route: 042
     Dates: start: 20121030, end: 20121130

REACTIONS (2)
  - Rhabdomyolysis [Recovering/Resolving]
  - Renal impairment [Unknown]
